FAERS Safety Report 18574818 (Version 3)
Quarter: 2021Q1

REPORT INFORMATION
  Report Type: Spontaneous
  Country: US (occurrence: US)
  Receive Date: 20201203
  Receipt Date: 20210210
  Transmission Date: 20210419
  Serious: Yes (Other)
  Sender: FDA-Public Use
  Company Number: US-PFIZER INC-2020471595

PATIENT
  Age: 45 Year
  Sex: Male

DRUGS (3)
  1. BENEFIX [Suspect]
     Active Substance: COAGULATION FACTOR IX RECOMBINANT HUMAN\ISOPROPYL ALCOHOL
     Indication: FACTOR IX DEFICIENCY
     Dosage: 2000 UNITS (+/?10%) AS NEEDED FOR MINOR BLEEDS AND 7000 UNITS (+/?10%) AS NEEDED FOR MAJOR BLEEDS
     Route: 042
     Dates: start: 201801
  2. BENEFIX [Suspect]
     Active Substance: COAGULATION FACTOR IX RECOMBINANT HUMAN\ISOPROPYL ALCOHOL
     Dosage: 2000 IU, AS NEEDED (+/? 10%) INTRAVENOUSLY AS NEEDED FOR MINOR BLEEDS)
     Route: 042
     Dates: start: 201801
  3. BENEFIX [Suspect]
     Active Substance: COAGULATION FACTOR IX RECOMBINANT HUMAN\ISOPROPYL ALCOHOL
     Dosage: 7000 IU, AS NEEDED (7000 UNITS (+/? 10%) INTRAVENOUSLY AS NEEDED FOR MAJOR BLEEDS)
     Route: 042
     Dates: start: 201801

REACTIONS (1)
  - Haemarthrosis [Unknown]
